FAERS Safety Report 9821755 (Version 1)
Quarter: 2014Q1

REPORT INFORMATION
  Report Type: Spontaneous
  Country: MX (occurrence: MX)
  Receive Date: 20140116
  Receipt Date: 20140116
  Transmission Date: 20141002
  Serious: Yes (Hospitalization, Other)
  Sender: FDA-Public Use
  Company Number: PHHY2014MX004292

PATIENT
  Age: 81 Year
  Sex: Female

DRUGS (5)
  1. ACLASTA [Suspect]
     Dosage: UNK UKN, UNK
     Route: 042
     Dates: start: 2010
  2. EXFORGE [Suspect]
     Indication: HYPERTENSION
     Dosage: 1 DF (160/10), DAILY
     Route: 048
     Dates: start: 201007, end: 201011
  3. METFORMIN [Concomitant]
     Indication: DIABETES MELLITUS
     Dosage: UNK UKN, UNK
  4. AMLODIPINE [Concomitant]
     Indication: DIABETES MELLITUS
     Dosage: UNK UKN, UNK
  5. B COMPLEX [Concomitant]
     Dosage: UNK UKN, UNK

REACTIONS (8)
  - Myocardial infarction [Recovered/Resolved]
  - Myocardial ischaemia [Recovered/Resolved]
  - Angina unstable [Not Recovered/Not Resolved]
  - Gastric haemorrhage [Recovered/Resolved]
  - Drug hypersensitivity [Recovered/Resolved]
  - Spinal deformity [Not Recovered/Not Resolved]
  - Bone decalcification [Not Recovered/Not Resolved]
  - Bone disorder [Not Recovered/Not Resolved]
